FAERS Safety Report 8962276 (Version 1)
Quarter: 2012Q4

REPORT INFORMATION
  Report Type: 
  Country: NL (occurrence: NL)
  Receive Date: 20121212
  Receipt Date: 20121212
  Transmission Date: 20130627
  Serious: Yes (Hospitalization, Other)
  Sender: FDA-Public Use
  Company Number: NL-PFIZER INC-2012309246

PATIENT
  Age: 40 Year
  Sex: Female
  Weight: 73 kg

DRUGS (4)
  1. GENOTROPIN [Suspect]
     Dosage: 0.3 mg, 1x/day, 7 injection/ Week
     Route: 058
     Dates: start: 20080729
  2. THYRAX [Concomitant]
     Indication: HYPOTHYROIDISM
     Dosage: UNK
     Dates: start: 20040920
  3. HYDROCORTISONE [Concomitant]
     Indication: ADRENAL INSUFFICIENCY
     Dosage: UNK
     Dates: start: 20041001
  4. DEHYDROEPIANDROSTERONE [Concomitant]
     Indication: ADRENAL INSUFFICIENCY
     Dosage: UNK
     Dates: start: 20080519

REACTIONS (1)
  - Adrenocortical insufficiency acute [Unknown]
